FAERS Safety Report 8495602-X (Version None)
Quarter: 2012Q3

REPORT INFORMATION
  Report Type: 
  Country: None (occurrence: None)
  Receive Date: 20120709
  Receipt Date: 20120703
  Transmission Date: 20120928
  Serious: Yes (Other)
  Sender: FDA-Public Use
  Company Number: FR-ROCHE-1077038

PATIENT
  Sex: Male

DRUGS (5)
  1. AVASTIN [Suspect]
     Indication: COLON CANCER METASTATIC
     Dates: start: 20110301, end: 20120314
  2. LEUCOVORIN CALCIUM [Concomitant]
  3. GADOLINIUM [Concomitant]
  4. FLUOROURACIL [Concomitant]
  5. IRINOTECAN HCL [Concomitant]

REACTIONS (4)
  - ANAL INFLAMMATION [None]
  - MYOSITIS [None]
  - ANAL FISSURE [None]
  - PAINFUL DEFAECATION [None]
